FAERS Safety Report 4775326-2 (Version None)
Quarter: 2005Q3

REPORT INFORMATION
  Report Type: 
  Country: None (occurrence: None)
  Receive Date: 20050922
  Receipt Date: 20050907
  Transmission Date: 20060218
  Serious: Yes (Hospitalization)
  Sender: FDA-Public Use
  Company Number: DE-BOEHRINGER INGELHEIM PHARMACEUTICALS, INC.-2005-DE-03627DE

PATIENT
  Sex: Female
  Weight: 93 kg

DRUGS (5)
  1. BUSCOPAN [Suspect]
     Route: 048
  2. BUSCOPAN PLUS [Suspect]
     Route: 048
  3. MELOXICAM [Suspect]
     Route: 048
  4. BROMAZEPAM [Suspect]
     Route: 048
  5. VOLTAREN [Suspect]
     Route: 048

REACTIONS (4)
  - DRUG ABUSER [None]
  - MULTIPLE DRUG OVERDOSE [None]
  - SOMNOLENCE [None]
  - SUICIDE ATTEMPT [None]
